FAERS Safety Report 21601404 (Version 1)
Quarter: 2022Q4

REPORT INFORMATION
  Report Type: Spontaneous
  Country: PL (occurrence: PL)
  Receive Date: 20221116
  Receipt Date: 20221116
  Transmission Date: 20230113
  Serious: Yes (Disabling)
  Sender: FDA-Public Use
  Company Number: PL-EGIS-HUN-2022-0576

PATIENT
  Age: 51 Year
  Sex: Female

DRUGS (7)
  1. ALPRAZOLAM [Interacting]
     Active Substance: ALPRAZOLAM
     Indication: Depression
     Dosage: 0.5 MILLIGRAM, TWO TIMES A DAY
     Route: 065
  2. ALPRAZOLAM [Interacting]
     Active Substance: ALPRAZOLAM
     Dosage: 1 MILLIGRAM, ONCE A DAY
     Route: 065
  3. SERTRALINE [Interacting]
     Active Substance: SERTRALINE HYDROCHLORIDE
     Indication: Depression
     Dosage: 50 MILLIGRAM, ONCE A DAY (IN THE MORNING)
     Route: 065
  4. SERTRALINE [Interacting]
     Active Substance: SERTRALINE HYDROCHLORIDE
     Dosage: 100 MILLIGRAM, ONCE A DAY
     Route: 065
  5. HYDROXYZINE [Suspect]
     Active Substance: HYDROXYZINE HYDROCHLORIDE
     Indication: Drooling
     Dosage: 50 MILLIGRAM, TWO TIMES A DAY
     Route: 065
  6. HYDROXYZINE [Suspect]
     Active Substance: HYDROXYZINE HYDROCHLORIDE
     Indication: Salivary hypersecretion
     Dosage: 100 MILLIGRAM, ONCE A DAY
     Route: 065
  7. MIANSERIN HYDROCHLORIDE [Interacting]
     Active Substance: MIANSERIN HYDROCHLORIDE
     Indication: Depression
     Dosage: 30 MILLIGRAM, ONCE A DAY, (AT A BEDTIME)
     Route: 048

REACTIONS (8)
  - Impaired work ability [Recovered/Resolved]
  - Dysarthria [Recovered/Resolved]
  - Salivary hypersecretion [Recovered/Resolved]
  - Labelled drug-drug interaction issue [Recovering/Resolving]
  - Loss of personal independence in daily activities [Unknown]
  - Somnolence [Unknown]
  - Condition aggravated [Recovered/Resolved]
  - Drug interaction [Recovered/Resolved]
